FAERS Safety Report 6699185-6 (Version None)
Quarter: 2010Q2

REPORT INFORMATION
  Report Type: 
  Country: None (occurrence: None)
  Receive Date: 20100427
  Receipt Date: 20100419
  Transmission Date: 20101027
  Serious: Yes (Hospitalization)
  Sender: FDA-Public Use
  Company Number: DE-AMGEN-US374835

PATIENT
  Sex: Female
  Weight: 65 kg

DRUGS (7)
  1. ENBREL [Suspect]
     Indication: RHEUMATOID ARTHRITIS
     Route: 058
     Dates: start: 20090929, end: 20091027
  2. VITAMIN D3 [Concomitant]
     Indication: OSTEOPOROSIS PROPHYLAXIS
     Dosage: 800 IU PER DAY
     Route: 048
  3. CALCIUM [Concomitant]
     Indication: OSTEOPOROSIS PROPHYLAXIS
     Dosage: 1000 MG PER DAY
     Route: 048
  4. PREDNISOLONE [Concomitant]
     Indication: RHEUMATOID ARTHRITIS
     Route: 048
     Dates: start: 20090901, end: 20091001
  5. PREDNISOLONE [Concomitant]
     Route: 048
     Dates: start: 20091001, end: 20091101
  6. PREDNISOLONE [Concomitant]
     Dosage: VARYING: AT FIRST 10 MG, THEN 5MG, THEN 80MG, THEN 1000MG, THEN 60MG AND AT LEAST 17.5MG PER DAY
     Dates: start: 20091101
  7. IBUPROFEN [Concomitant]
     Indication: RHEUMATOID ARTHRITIS
     Dosage: UP TO 3X400 MG WHEN NEEDED
     Route: 048

REACTIONS (8)
  - ATRIAL FIBRILLATION [None]
  - HEPATOMEGALY [None]
  - HYPERLIPIDAEMIA [None]
  - IRON DEFICIENCY ANAEMIA [None]
  - LUNG INFECTION [None]
  - PERICARDITIS [None]
  - PLEURISY [None]
  - VITAMIN B12 DEFICIENCY [None]
